FAERS Safety Report 4731591-9 (Version None)
Quarter: 2005Q3

REPORT INFORMATION
  Report Type: 
  Country: None (occurrence: None)
  Receive Date: 20050722
  Receipt Date: 20050429
  Transmission Date: 20060218
  Serious: Yes (Other)
  Sender: FDA-Public Use
  Company Number: USA-2005-0020102

PATIENT
  Age: 45 Year
  Sex: Male
  Weight: 72.6 kg

DRUGS (6)
  1. PALLADONE [Suspect]
     Indication: PAIN
     Dosage: 12 MG, DAILY, ORAL
     Route: 048
     Dates: start: 20050418, end: 20050420
  2. KLONOPIN [Concomitant]
  3. ZANAFLEX [Concomitant]
  4. NEXIUM [Concomitant]
  5. LEVITRA [Concomitant]
  6. COMBIVENT [Concomitant]

REACTIONS (2)
  - DRUG ABUSER [None]
  - DYSPNOEA [None]
